FAERS Safety Report 5096655-1 (Version None)
Quarter: 2006Q3

REPORT INFORMATION
  Report Type: 
  Country: None (occurrence: None)
  Receive Date: 20060831
  Receipt Date: 20060821
  Transmission Date: 20061208
  Serious: Yes (Death, Life-Threatening)
  Sender: FDA-Public Use
  Company Number: GXKR2006GB05052

PATIENT
  Age: 12 Month
  Sex: Female
  Weight: 7 kg

DRUGS (4)
  1. CLARITHROMYCIN [Suspect]
     Indication: RESPIRATORY TRACT INFECTION
     Dosage: 62.5 MG, ORAL
     Route: 048
     Dates: start: 20050101, end: 20050107
  2. CEFTRIAXONE [Concomitant]
  3. CHLOROTHIAZIDE [Concomitant]
  4. DIAZOXIDE [Concomitant]

REACTIONS (3)
  - ASCITES [None]
  - HEPATIC FAILURE [None]
  - MULTI-ORGAN FAILURE [None]
